FAERS Safety Report 15321311 (Version 1)
Quarter: 2018Q3

REPORT INFORMATION
  Report Type: Spontaneous
  Country: US (occurrence: US)
  Receive Date: 20180821
  Receipt Date: 20180821
  Transmission Date: 20181010
  Serious: Yes (Life-Threatening, Other)
  Sender: FDA-Public Use
  Company Number: None

PATIENT
  Age: 69 Year
  Sex: Female
  Weight: 87.09 kg

DRUGS (11)
  1. PRAVASTATIN. [Concomitant]
     Active Substance: PRAVASTATIN
  2. VALSARTAN. [Suspect]
     Active Substance: VALSARTAN
     Indication: BLOOD PRESSURE MEASUREMENT
     Dosage: ?          QUANTITY:1 DF DOSAGE FORM;?
     Route: 048
     Dates: start: 20180620, end: 20180706
  3. METFORMIN ER [Concomitant]
     Active Substance: METFORMIN HYDROCHLORIDE
  4. TURMERIC CURCUMIN 500MG W/50MG GINGER [Concomitant]
  5. ANASTROZOLE. [Concomitant]
     Active Substance: ANASTROZOLE
  6. OMEGA?3 ACIDS [Concomitant]
     Active Substance: OMEGA-3 FATTY ACIDS
  7. VITAMIN E [Concomitant]
     Active Substance: .ALPHA.-TOCOPHEROL
  8. VITAMIN D3 [Concomitant]
     Active Substance: CHOLECALCIFEROL
  9. FISH OIL [Concomitant]
     Active Substance: FISH OIL
  10. B COMPLEX + C [Concomitant]
  11. DIOVAN [Concomitant]
     Active Substance: VALSARTAN

REACTIONS (7)
  - Product substitution issue [None]
  - Product use issue [None]
  - Blood pressure decreased [None]
  - Blood pressure systolic increased [None]
  - Headache [None]
  - Arthralgia [None]
  - Drug effect decreased [None]

NARRATIVE: CASE EVENT DATE: 20180620
